FAERS Safety Report 19730021 (Version 1)
Quarter: 2021Q3

REPORT INFORMATION
  Report Type: Spontaneous
  Country: US (occurrence: US)
  Receive Date: 20210820
  Receipt Date: 20210820
  Transmission Date: 20211014
  Serious: Yes (Other)
  Sender: FDA-Public Use
  Company Number: ALC2021US004728

PATIENT
  Sex: Male

DRUGS (1)
  1. ICAPS AREDS 2 SOFTGEL 120CT [Suspect]
     Active Substance: MINERALS\VITAMINS
     Indication: PRODUCT USED FOR UNKNOWN INDICATION
     Dosage: UNK
     Route: 065

REACTIONS (2)
  - Product taste abnormal [Unknown]
  - Foreign body in throat [Unknown]
